FAERS Safety Report 9305287 (Version 1)
Quarter: 2013Q2

REPORT INFORMATION
  Report Type: Spontaneous
  Country: TR (occurrence: None)
  Receive Date: 20130520
  Receipt Date: 20130520
  Transmission Date: 20140414
  Serious: Yes (Hospitalization)
  Sender: FDA-Public Use
  Company Number: 7210724

PATIENT
  Age: 38 Year
  Sex: Female

DRUGS (3)
  1. EUTHYROX [Suspect]
     Indication: THYROID THERAPY
     Dosage: (25 MCG, 1 IN 1 D)?--2012 - 25-APR-2013
     Route: 048
     Dates: start: 2012, end: 20130425
  2. PANTOPRAZOLE SODIUM [Suspect]
     Indication: GASTRIC ULCER
     Dosage: 40 MG (40 MG, 1 IN 1 D)
     Route: 048
     Dates: start: 2012
  3. PREDNOL [Suspect]
     Indication: DYSPNOEA
     Route: 048
     Dates: start: 201303

REACTIONS (6)
  - Renal failure [None]
  - Pulmonary haemorrhage [None]
  - Weight decreased [None]
  - Dyspepsia [None]
  - Cardiac septal defect repair [None]
  - Dialysis [None]
